FAERS Safety Report 18789332 (Version 5)
Quarter: 2021Q1

REPORT INFORMATION
  Report Type: Spontaneous
  Country: CA (occurrence: CA)
  Receive Date: 20210126
  Receipt Date: 20210227
  Transmission Date: 20210419
  Serious: Yes (Other)
  Sender: FDA-Public Use
  Company Number: CA-UNITED THERAPEUTICS-UNT-2021-000947

PATIENT
  Age: 61 Year
  Sex: Female

DRUGS (2)
  1. REMODULIN [Suspect]
     Active Substance: TREPROSTINIL
     Indication: PRODUCT USED FOR UNKNOWN INDICATION
     Dosage: UNK, CONTINUING
     Route: 058
  2. REMODULIN [Suspect]
     Active Substance: TREPROSTINIL
     Dosage: UNK, CONTINUING (INCREASED DOSE)
     Route: 058

REACTIONS (12)
  - Complication of device insertion [Unknown]
  - Cyanosis [Unknown]
  - Device kink [Unknown]
  - Chronic obstructive pulmonary disease [Unknown]
  - Infusion site pain [Not Recovered/Not Resolved]
  - Pain [Unknown]
  - Nausea [Unknown]
  - Dyspnoea [Recovering/Resolving]
  - Diarrhoea [Unknown]
  - Headache [Unknown]
  - Palpitations [Unknown]
  - Chest discomfort [Unknown]

NARRATIVE: CASE EVENT DATE: 202101
